FAERS Safety Report 4503171-1 (Version None)
Quarter: 2004Q4

REPORT INFORMATION
  Report Type: 
  Country: None (occurrence: None)
  Receive Date: 20041117
  Receipt Date: 20041109
  Transmission Date: 20050328
  Serious: Yes (Hospitalization, Disabling, Other)
  Sender: FDA-Public Use
  Company Number: US-MERCK-0411USA01730

PATIENT
  Sex: Female

DRUGS (1)
  1. FOSAMAX [Suspect]
     Route: 048

REACTIONS (3)
  - OEDEMA MOUTH [None]
  - OEDEMA PERIPHERAL [None]
  - SWELLING FACE [None]
